FAERS Safety Report 10946357 (Version 1)
Quarter: 2015Q1

REPORT INFORMATION
  Report Type: Spontaneous
  Country: US (occurrence: None)
  Receive Date: 20150212
  Receipt Date: 20150212
  Transmission Date: 20150721
  Serious: No
  Sender: FDA-Public Use
  Company Number: TPA2012A00078

PATIENT
  Age: 55 Year
  Sex: Male

DRUGS (4)
  1. ACCUPRIL [Concomitant]
     Active Substance: QUINAPRIL HYDROCHLORIDE
  2. ULORIC [Suspect]
     Active Substance: FEBUXOSTAT
     Indication: GOUT
     Dosage: 40 MG, EVERY MORNING, PER ORAL
     Route: 048
     Dates: start: 20111222
  3. GOUT [Concomitant]
  4. ARTHROTEC (DICLOFENAC SODIUM) [Concomitant]

REACTIONS (1)
  - Gout [None]

NARRATIVE: CASE EVENT DATE: 20111224
